FAERS Safety Report 4660342-1 (Version None)
Quarter: 2005Q2

REPORT INFORMATION
  Report Type: 
  Country: None (occurrence: None)
  Receive Date: 20050511
  Receipt Date: 20050511
  Transmission Date: 20051028
  Serious: Yes (Hospitalization)
  Sender: FDA-Public Use
  Company Number: None

PATIENT
  Age: 55 Year
  Sex: Male

DRUGS (1)
  1. WARFARIN SODIUM [Suspect]
     Indication: AORTIC VALVE REPLACEMENT
     Dosage: 3MG QHS, EXCEPT 1.5MG T,R
     Dates: start: 20040824, end: 20041231

REACTIONS (3)
  - DIVERTICULUM INTESTINAL [None]
  - HAEMATOCHEZIA [None]
  - HAEMORRHOIDS [None]
